APPROVED DRUG PRODUCT: MIDAZOLAM HYDROCHLORIDE
Active Ingredient: MIDAZOLAM HYDROCHLORIDE
Strength: EQ 2MG BASE/ML
Dosage Form/Route: SYRUP;ORAL
Application: A075873 | Product #001 | TE Code: AA
Applicant: HIKMA PHARMACEUTICALS USA INC
Approved: Apr 30, 2002 | RLD: No | RS: Yes | Type: RX